FAERS Safety Report 20937612 (Version 1)
Quarter: 2022Q2

REPORT INFORMATION
  Report Type: Spontaneous
  Country: US (occurrence: None)
  Receive Date: 20220608
  Receipt Date: 20220608
  Transmission Date: 20220721
  Serious: Yes (Disabling)
  Sender: FDA-Public Use
  Company Number: None

PATIENT
  Age: 43 Year
  Sex: Male
  Weight: 99 kg

DRUGS (9)
  1. PAXLOVID [Suspect]
     Active Substance: NIRMATRELVIR\RITONAVIR
     Indication: COVID-19 treatment
     Dosage: OTHER QUANTITY : 3 TABLET(S);?FREQUENCY : TWICE A DAY;?
     Route: 048
     Dates: start: 20220607, end: 20220608
  2. Breo - inhaler (nightly) [Concomitant]
  3. Ubrelvy 100 mg (as needed) [Concomitant]
  4. Sumatriptan SUCC 100 mg (as needed) [Concomitant]
  5. Life Extension Migra-Eeze [Concomitant]
  6. Butterbur Root Extract [Concomitant]
  7. niacin slow release 250 mg [Concomitant]
  8. vitamin d 2000 mg [Concomitant]
  9. vitamin c 100 mg [Concomitant]

REACTIONS (7)
  - Dysgeusia [None]
  - Adverse drug reaction [None]
  - Taste disorder [None]
  - Diarrhoea [None]
  - Nausea [None]
  - Dizziness [None]
  - Feeling abnormal [None]

NARRATIVE: CASE EVENT DATE: 20220607
